FAERS Safety Report 6469287-8 (Version None)
Quarter: 2009Q4

REPORT INFORMATION
  Report Type: 
  Country: None (occurrence: None)
  Receive Date: 20091203
  Receipt Date: 20071211
  Transmission Date: 20100525
  Serious: Yes (Hospitalization)
  Sender: FDA-Public Use
  Company Number: US-ELI_LILLY_AND_COMPANY-US200708001021

PATIENT
  Sex: Male
  Weight: 107.94 kg

DRUGS (3)
  1. ZYPREXA [Suspect]
     Dosage: 10 MG, UNK
     Dates: start: 20060401
  2. CARVEDILOL [Concomitant]
     Dates: start: 20060607
  3. LOPRESSOR [Concomitant]
     Dates: start: 20060607

REACTIONS (7)
  - APHASIA [None]
  - CEREBROVASCULAR ACCIDENT [None]
  - DEEP VEIN THROMBOSIS [None]
  - DIABETES MELLITUS [None]
  - DYSLIPIDAEMIA [None]
  - HYPERTENSION [None]
  - MENTAL STATUS CHANGES [None]
